FAERS Safety Report 5609043-3 (Version None)
Quarter: 2008Q1

REPORT INFORMATION
  Report Type: 
  Country: None (occurrence: None)
  Receive Date: 20080131
  Receipt Date: 20080117
  Transmission Date: 20080703
  Serious: Yes (Hospitalization)
  Sender: FDA-Public Use
  Company Number: US-AMGEN-STX257806

PATIENT
  Sex: Female

DRUGS (4)
  1. ENBREL [Suspect]
     Indication: RHEUMATOID ARTHRITIS
     Route: 058
     Dates: start: 20060619, end: 20070501
  2. METHOTREXATE [Concomitant]
     Dates: start: 20060401
  3. MOBIC [Concomitant]
     Dates: start: 20070201
  4. HUMIRA [Concomitant]

REACTIONS (1)
  - HYPERCOAGULATION [None]
